FAERS Safety Report 13372129 (Version 1)
Quarter: 2017Q1

REPORT INFORMATION
  Report Type: Spontaneous
  Country: CN (occurrence: CN)
  Receive Date: 20170327
  Receipt Date: 20170327
  Transmission Date: 20170429
  Serious: Yes (Other)
  Sender: FDA-Public Use
  Company Number: CN-AMGEN-CHNSP2017026544

PATIENT

DRUGS (2)
  1. ARAVA [Concomitant]
     Active Substance: LEFLUNOMIDE
     Dosage: UNK
  2. ENBREL [Suspect]
     Active Substance: ETANERCEPT
     Indication: RHEUMATOID ARTHRITIS
     Dosage: 1 VIAL, TWICE WEEKLY
     Route: 065
     Dates: end: 20170320

REACTIONS (3)
  - Meningioma [Unknown]
  - Sleep disorder due to general medical condition, insomnia type [Unknown]
  - Headache [Unknown]

NARRATIVE: CASE EVENT DATE: 20170320
